FAERS Safety Report 8611137-5 (Version None)
Quarter: 2012Q3

REPORT INFORMATION
  Report Type: 
  Country: None (occurrence: None)
  Receive Date: 20120822
  Receipt Date: 20120820
  Transmission Date: 20120928
  Serious: Yes (Hospitalization)
  Sender: FDA-Public Use
  Company Number: US-PFIZER INC-2012204189

PATIENT
  Age: 75 Year
  Sex: Male
  Weight: 56.236 kg

DRUGS (1)
  1. RAPAMUNE [Suspect]
     Indication: POSTOPERATIVE CARE
     Dosage: 2 MG, 1X/DAY
     Route: 048
     Dates: start: 20060801

REACTIONS (4)
  - DEHYDRATION [None]
  - MALAISE [None]
  - ACTIVITIES OF DAILY LIVING IMPAIRED [None]
  - APHAGIA [None]
